FAERS Safety Report 7006944-9 (Version None)
Quarter: 2010Q3

REPORT INFORMATION
  Report Type: 
  Country: None (occurrence: None)
  Receive Date: 20100922
  Receipt Date: 20100914
  Transmission Date: 20110219
  Serious: Yes (Hospitalization, Other)
  Sender: FDA-Public Use
  Company Number: FR-JNJFOC-20100510436

PATIENT
  Age: 82 Year
  Sex: Male

DRUGS (14)
  1. TAVANIC [Suspect]
     Indication: LUNG INFECTION
     Route: 048
  2. CALCIPARINE [Suspect]
     Indication: PRODUCT USED FOR UNKNOWN INDICATION
     Dosage: 7500 IU
     Route: 058
  3. KARDEGIC [Suspect]
     Indication: ARTERIOSCLEROSIS OBLITERANS
     Route: 048
  4. KARDEGIC [Suspect]
     Route: 048
  5. PLAVIX [Suspect]
     Indication: ARTERIOSCLEROSIS OBLITERANS
     Route: 048
  6. PRAKILENE [Suspect]
     Indication: ARTERIOSCLEROSIS OBLITERANS
     Route: 048
  7. BUMEX [Suspect]
     Indication: HYPERTENSION
     Route: 048
  8. ROCEPHIN [Suspect]
     Indication: LUNG INFECTION
     Route: 048
  9. ADVIL LIQUI-GELS [Suspect]
     Indication: PRODUCT USED FOR UNKNOWN INDICATION
     Route: 048
  10. ELISOR [Suspect]
     Indication: PRODUCT USED FOR UNKNOWN INDICATION
     Route: 048
  11. TAREG [Suspect]
     Indication: HYPERTENSION
     Route: 048
  12. HYDROXYETHYLAMIDON [Concomitant]
     Indication: SHOCK
     Route: 065
  13. ADANCOR [Concomitant]
     Indication: PRODUCT USED FOR UNKNOWN INDICATION
     Route: 065
  14. ISOPHANE [Concomitant]
     Indication: PRODUCT USED FOR UNKNOWN INDICATION
     Route: 065

REACTIONS (10)
  - ALTERED STATE OF CONSCIOUSNESS [None]
  - ASPIRATION [None]
  - CEREBRAL INFARCTION [None]
  - CEREBROVASCULAR ACCIDENT [None]
  - DISTURBANCE IN ATTENTION [None]
  - GASTRIC ULCER HAEMORRHAGE [None]
  - HAEMOGLOBIN DECREASED [None]
  - ISCHAEMIC STROKE [None]
  - OESOPHAGEAL ULCER HAEMORRHAGE [None]
  - SHOCK [None]
